FAERS Safety Report 5746809-3 (Version None)
Quarter: 2008Q2

REPORT INFORMATION
  Report Type: 
  Country: None (occurrence: None)
  Receive Date: 20080522
  Receipt Date: 20080518
  Transmission Date: 20081010
  Serious: Yes (Other)
  Sender: FDA-Public Use
  Company Number: US-PFIZER INC-2008042648

PATIENT
  Sex: Male
  Weight: 81.6 kg

DRUGS (5)
  1. CHANTIX [Suspect]
     Indication: SMOKING CESSATION THERAPY
     Dates: start: 20080301, end: 20080301
  2. SYMBYAX [Suspect]
  3. CITALOPRAM HYDROBROMIDE [Concomitant]
  4. PREVACID [Concomitant]
  5. MESALAMINE [Concomitant]

REACTIONS (5)
  - BIPOLAR DISORDER [None]
  - DEPRESSED MOOD [None]
  - INSOMNIA [None]
  - MOVEMENT DISORDER [None]
  - SNORING [None]
